FAERS Safety Report 9903929 (Version 1)
Quarter: 2014Q1

REPORT INFORMATION
  Report Type: Spontaneous
  Country: US (occurrence: US)
  Receive Date: 20140218
  Receipt Date: 20140218
  Transmission Date: 20141002
  Serious: No
  Sender: FDA-Public Use
  Company Number: US-BIOGENIDEC-2014BI015641

PATIENT
  Sex: Female

DRUGS (2)
  1. TYSABRI [Suspect]
     Indication: MULTIPLE SCLEROSIS
     Route: 042
     Dates: start: 20120530
  2. REBIF [Concomitant]

REACTIONS (3)
  - Liver disorder [Unknown]
  - Temperature intolerance [Unknown]
  - Multiple sclerosis relapse [Recovered/Resolved]
